FAERS Safety Report 9396340 (Version 1)
Quarter: 2013Q3

REPORT INFORMATION
  Report Type: Spontaneous
  Country: US (occurrence: None)
  Receive Date: 20130708
  Receipt Date: 20130708
  Transmission Date: 20140515
  Serious: Yes (Hospitalization)
  Sender: FDA-Public Use
  Company Number: UCM201306-000037

PATIENT
  Age: 42 Year
  Sex: Female

DRUGS (2)
  1. TOPIRAMATE [Suspect]
  2. ARMOUR THYROID [Suspect]

REACTIONS (4)
  - Atrial septal defect [None]
  - Renal embolism [None]
  - Renal infarct [None]
  - Paradoxical embolism [None]
